FAERS Safety Report 22139737 (Version 1)
Quarter: 2023Q1

REPORT INFORMATION
  Report Type: Spontaneous
  Country: US (occurrence: US)
  Receive Date: 20230327
  Receipt Date: 20230327
  Transmission Date: 20230417
  Serious: Yes (Hospitalization, Other)
  Sender: FDA-Public Use
  Company Number: US-APOTEX-2023AP005782

PATIENT
  Age: 21 Year
  Sex: Male

DRUGS (1)
  1. BUPROPION [Suspect]
     Active Substance: BUPROPION
     Indication: Product used for unknown indication
     Dosage: UNK
     Route: 065

REACTIONS (5)
  - Bundle branch block left [Recovering/Resolving]
  - Cardiogenic shock [Recovering/Resolving]
  - Unresponsive to stimuli [Recovering/Resolving]
  - Overdose [Recovering/Resolving]
  - Seizure [Recovered/Resolved]
